FAERS Safety Report 12217459 (Version 1)
Quarter: 2016Q1

REPORT INFORMATION
  Report Type: Spontaneous
  Country: NL (occurrence: NL)
  Receive Date: 20160329
  Receipt Date: 20160329
  Transmission Date: 20160526
  Serious: No
  Sender: FDA-Public Use
  Company Number: NL-JNJFOC-20160319315

PATIENT
  Age: 89 Year
  Sex: Female

DRUGS (4)
  1. DUROGESIC [Suspect]
     Active Substance: FENTANYL
     Indication: OSTEOPOROSIS
     Route: 062
  2. DUROGESIC [Suspect]
     Active Substance: FENTANYL
     Indication: OSTEOPOROSIS
     Route: 062
  3. DUROGESIC [Suspect]
     Active Substance: FENTANYL
     Indication: OSTEOPOROSIS
     Route: 062
  4. DUROGESIC [Suspect]
     Active Substance: FENTANYL
     Indication: OSTEOPOROSIS
     Route: 062

REACTIONS (6)
  - Hyperhidrosis [Unknown]
  - Drug dose omission [Unknown]
  - Chills [Unknown]
  - Palpitations [Unknown]
  - Drug withdrawal syndrome [Unknown]
  - Drug ineffective [Unknown]
